FAERS Safety Report 23191527 (Version 2)
Quarter: 2024Q1

REPORT INFORMATION
  Report Type: Spontaneous
  Country: JP (occurrence: JP)
  Receive Date: 20231116
  Receipt Date: 20240102
  Transmission Date: 20240409
  Serious: No
  Sender: FDA-Public Use
  Company Number: JP-PFIZER INC-PV202300159457

PATIENT
  Age: 13 Year
  Sex: Male
  Weight: 40.8 kg

DRUGS (1)
  1. NGENLA [Suspect]
     Active Substance: SOMATROGON-GHLA
     Dosage: 26 MG, ONCE A WEEK
     Route: 058
     Dates: start: 20220808

REACTIONS (1)
  - Injection site pain [Unknown]

NARRATIVE: CASE EVENT DATE: 20220808
